FAERS Safety Report 8018281-4 (Version None)
Quarter: 2012Q1

REPORT INFORMATION
  Report Type: 
  Country: None (occurrence: None)
  Receive Date: 20120103
  Receipt Date: 20111220
  Transmission Date: 20120608
  Serious: Yes (Life-Threatening)
  Sender: FDA-Public Use
  Company Number: MX-SANOFI-AVENTIS-2011SA083785

PATIENT
  Age: 73 Year
  Sex: Male

DRUGS (1)
  1. INSULIN GLARGINE [Suspect]
     Route: 065

REACTIONS (1)
  - MYOCARDIAL INFARCTION [None]
